FAERS Safety Report 20823874 (Version 2)
Quarter: 2022Q2

REPORT INFORMATION
  Report Type: Report from Study
  Country: DE (occurrence: None)
  Receive Date: 20220513
  Receipt Date: 20220629
  Transmission Date: 20220721
  Serious: Yes (Other)
  Sender: FDA-Public Use
  Company Number: DE-ROCHE-3090838

PATIENT
  Age: 44 Year
  Sex: Female
  Weight: 63 kg

DRUGS (7)
  1. ATEZOLIZUMAB [Suspect]
     Active Substance: ATEZOLIZUMAB
     Indication: Triple negative breast cancer
     Route: 041
     Dates: start: 20220329
  2. BEVACIZUMAB [Suspect]
     Active Substance: BEVACIZUMAB
     Indication: Triple negative breast cancer
     Route: 042
     Dates: start: 20220329
  3. PACLITAXEL [Suspect]
     Active Substance: PACLITAXEL
     Indication: Triple negative breast cancer
     Route: 042
     Dates: start: 20220329
  4. PANTOPRAZOLE [Concomitant]
     Active Substance: PANTOPRAZOLE
     Indication: Prophylaxis
     Route: 048
     Dates: start: 20220119
  5. VITAMIN B6 [Concomitant]
     Active Substance: PYRIDOXINE HYDROCHLORIDE
     Indication: Prophylaxis
     Route: 048
     Dates: start: 20220322
  6. AMPHOTERICIN B [Concomitant]
     Active Substance: AMPHOTERICIN B
     Route: 048
     Dates: start: 20220322
  7. CANNABIDIOL [Concomitant]
     Active Substance: CANNABIDIOL
     Indication: Prophylaxis
     Dosage: 9 DROPS
     Route: 048
     Dates: start: 20220320

REACTIONS (1)
  - Autoimmune thyroiditis [Not Recovered/Not Resolved]

NARRATIVE: CASE EVENT DATE: 20220428
